FAERS Safety Report 5023415-X (Version None)
Quarter: 2006Q2

REPORT INFORMATION
  Report Type: 
  Country: None (occurrence: None)
  Receive Date: 20060606
  Receipt Date: 20060524
  Transmission Date: 20061013
  Serious: Yes (Other)
  Sender: FDA-Public Use
  Company Number: GXKR2006FR02967

PATIENT
  Age: 33 Year
  Sex: Male

DRUGS (1)
  1. AMOXICILLIN [Suspect]
     Dosage: ONCE/SINGLE, ORAL
     Route: 048
     Dates: start: 20060523, end: 20060523

REACTIONS (1)
  - ANGIONEUROTIC OEDEMA [None]
